FAERS Safety Report 10897876 (Version 2)
Quarter: 2015Q2

REPORT INFORMATION
  Report Type: Report from Study
  Country: US (occurrence: US)
  Receive Date: 20150309
  Receipt Date: 20150608
  Transmission Date: 20150821
  Serious: Yes (Hospitalization, Other)
  Sender: FDA-Public Use
  Company Number: US-SA-2015SA000234

PATIENT
  Age: 43 Year
  Sex: Female

DRUGS (2)
  1. COPAXONE [Concomitant]
     Active Substance: GLATIRAMER ACETATE
     Indication: MULTIPLE SCLEROSIS
     Dates: start: 20130101, end: 20141212
  2. AUBAGIO [Suspect]
     Active Substance: TERIFLUNOMIDE
     Indication: MULTIPLE SCLEROSIS
     Route: 048
     Dates: start: 20141226

REACTIONS (12)
  - Nausea [Unknown]
  - Diarrhoea [Unknown]
  - Multiple sclerosis relapse [Unknown]
  - Diplopia [Unknown]
  - Malaise [Unknown]
  - Visual acuity reduced [Unknown]
  - Gastric disorder [Unknown]
  - Dizziness [Unknown]
  - Malaise [Unknown]
  - Influenza [Recovering/Resolving]
  - Central nervous system lesion [Unknown]
  - Headache [Unknown]

NARRATIVE: CASE EVENT DATE: 2014
